FAERS Safety Report 21498775 (Version 1)
Quarter: 2022Q4

REPORT INFORMATION
  Report Type: Spontaneous
  Country: US (occurrence: None)
  Receive Date: 20221021
  Receipt Date: 20221021
  Transmission Date: 20230112
  Serious: Yes (Hospitalization)
  Sender: FDA-Public Use
  Company Number: None

PATIENT
  Age: 21 Year
  Sex: Female
  Weight: 62 kg

DRUGS (1)
  1. ADAKVEO [Suspect]
     Active Substance: CRIZANLIZUMAB-TMCA
     Indication: Sickle cell disease
     Dosage: FREQUENCY : ONCE;?
     Route: 042
     Dates: start: 20220930, end: 20220930

REACTIONS (6)
  - Infusion related reaction [None]
  - Pain [None]
  - Dyspnoea [None]
  - Hypersensitivity [None]
  - Respiratory syncytial virus infection [None]
  - Pyelonephritis [None]

NARRATIVE: CASE EVENT DATE: 20220930
